FAERS Safety Report 8069843-X (Version None)
Quarter: 2012Q1

REPORT INFORMATION
  Report Type: 
  Country: None (occurrence: None)
  Receive Date: 20120125
  Receipt Date: 20120125
  Transmission Date: 20120608
  Serious: Yes (Life-Threatening, Hospitalization, Disabling)
  Sender: FDA-Public Use
  Company Number: None

PATIENT
  Age: 55 Year
  Sex: Female
  Weight: 66.678 kg

DRUGS (3)
  1. SESTAMIBI [Concomitant]
     Dosage: 30 MCI
     Route: 040
     Dates: start: 20120105, end: 20120105
  2. REGADENOSON [Suspect]
     Indication: CARDIAC ARREST
     Dosage: 0.4MG
     Route: 040
     Dates: start: 20120105, end: 20120105
  3. REGADENOSON [Suspect]
     Indication: PULSELESS ELECTRICAL ACTIVITY
     Dosage: 0.4MG
     Route: 040
     Dates: start: 20120105, end: 20120105

REACTIONS (3)
  - PULSELESS ELECTRICAL ACTIVITY [None]
  - UNRESPONSIVE TO STIMULI [None]
  - BRADYCARDIA [None]
